FAERS Safety Report 5410718-X (Version None)
Quarter: 2007Q3

REPORT INFORMATION
  Report Type: 
  Country: None (occurrence: None)
  Receive Date: 20070810
  Receipt Date: 20070115
  Transmission Date: 20080115
  Serious: No
  Sender: FDA-Public Use
  Company Number: A0635677A

PATIENT
  Sex: Female

DRUGS (4)
  1. PAXIL CR [Suspect]
     Indication: ANXIETY DISORDER
     Dosage: 25MG PER DAY
     Route: 048
     Dates: start: 20070114
  2. ATARAX [Suspect]
  3. VALIUM [Suspect]
  4. ATENOLOL [Concomitant]

REACTIONS (1)
  - SEDATION [None]
